FAERS Safety Report 7850222-2 (Version None)
Quarter: 2011Q4

REPORT INFORMATION
  Report Type: 
  Country: None (occurrence: None)
  Receive Date: 20111026
  Receipt Date: 20111018
  Transmission Date: 20120403
  Serious: Yes (Disabling)
  Sender: FDA-Public Use
  Company Number: DE-JNJFOC-20111007313

PATIENT
  Age: 85 Year
  Sex: Female

DRUGS (7)
  1. LEVOFLOXACIN [Suspect]
     Indication: BRONCHITIS
     Route: 065
     Dates: start: 20110901
  2. DUSPATAL NOS [Concomitant]
     Route: 065
  3. ACETAMINOPHEN [Concomitant]
     Route: 065
  4. NYSTATIN [Concomitant]
     Indication: TRACHEITIS
     Route: 065
  5. ASPIRIN [Concomitant]
     Route: 065
  6. LYRICA [Concomitant]
     Route: 065
  7. METOPROLOL SUCCINATE [Concomitant]
     Route: 065

REACTIONS (5)
  - DEPRESSED MOOD [None]
  - TENDON PAIN [None]
  - MYALGIA [None]
  - TENDON INJURY [None]
  - HYPOKINESIA [None]
